FAERS Safety Report 9446012 (Version 1)
Quarter: 2013Q3

REPORT INFORMATION
  Report Type: Report from Study
  Country: PA (occurrence: PA)
  Receive Date: 20130807
  Receipt Date: 20130807
  Transmission Date: 20140515
  Serious: Yes (Other)
  Sender: FDA-Public Use
  Company Number: PA-ROCHE-1249061

PATIENT
  Age: 80 Year
  Sex: Female
  Weight: 55.84 kg

DRUGS (6)
  1. BONVIVA [Suspect]
     Indication: SPONDYLITIS
     Route: 048
     Dates: start: 20090815, end: 201301
  2. BONVIVA [Suspect]
     Route: 048
     Dates: start: 20090814, end: 20120614
  3. BONVIVA [Suspect]
     Route: 065
     Dates: start: 20130414
  4. LISINOPRIL [Concomitant]
     Indication: HYPERTENSION
     Route: 048
     Dates: start: 2010
  5. AMLODIPINE [Concomitant]
     Indication: HYPERTENSION
     Route: 048
     Dates: start: 2010
  6. CALCIUM CITRATE [Concomitant]
     Route: 048
     Dates: start: 2000

REACTIONS (4)
  - Cerebral ischaemia [Recovering/Resolving]
  - Vaginal haemorrhage [Unknown]
  - Insomnia [Unknown]
  - Irritability [Unknown]
